FAERS Safety Report 11177448 (Version 1)
Quarter: 2015Q2

REPORT INFORMATION
  Report Type: Spontaneous
  Country: SE (occurrence: SE)
  Receive Date: 20150610
  Receipt Date: 20150610
  Transmission Date: 20150821
  Serious: Yes (Life-Threatening, Hospitalization)
  Sender: FDA-Public Use
  Company Number: SE-TEVA-568060ISR

PATIENT
  Age: 17 Year
  Sex: Female

DRUGS (8)
  1. PROPAVAN 25 MG TABLETT [Suspect]
     Active Substance: PROPIOMAZINE
     Dates: start: 20150522, end: 20150522
  2. SALICYLSYRA I LOCOBASE KRAM APL [Concomitant]
  3. OXASCAND 5 MG TABLETT [Suspect]
     Active Substance: OXAZEPAM
     Dates: start: 20150522, end: 20150522
  4. IMOVANE [Suspect]
     Active Substance: ZOPICLONE
     Dates: start: 20150522, end: 20150522
  5. SERTRALIN ACTAVIS 50 MG FILMDRAGERAD TABLETT [Suspect]
     Active Substance: SERTRALINE HYDROCHLORIDE
     Route: 048
     Dates: start: 20150522, end: 20150522
  6. ATARAX [Suspect]
     Active Substance: HYDROXYZINE\HYDROXYZINE HYDROCHLORIDE
     Dates: start: 20150522, end: 20150522
  7. TRIONETTA 28 DRAGERAD TABLETT [Concomitant]
  8. ALVEDON 500 MG FILMDRAGERAD TABLETT [Concomitant]
     Dates: start: 20150522, end: 20150522

REACTIONS (4)
  - Suicide attempt [Recovered/Resolved]
  - Poisoning [Recovered/Resolved]
  - Somnolence [Recovered/Resolved]
  - Loss of consciousness [Recovered/Resolved]

NARRATIVE: CASE EVENT DATE: 20150522
